FAERS Safety Report 9252987 (Version 1)
Quarter: 2013Q2

REPORT INFORMATION
  Report Type: Spontaneous
  Country: IT (occurrence: IT)
  Receive Date: 20130424
  Receipt Date: 20130424
  Transmission Date: 20140414
  Serious: Yes (Hospitalization)
  Sender: FDA-Public Use
  Company Number: IT-MYLANLABS-2013S1008022

PATIENT
  Age: 101 Year
  Sex: Female

DRUGS (2)
  1. KETOPROFEN [Suspect]
     Indication: FRACTURE PAIN
     Route: 048
     Dates: start: 20130306, end: 20130323
  2. AULIN [Suspect]
     Indication: FRACTURE PAIN
     Route: 048
     Dates: start: 20130305, end: 20130305

REACTIONS (1)
  - Leukocytoclastic vasculitis [Recovering/Resolving]
